FAERS Safety Report 18463875 (Version 1)
Quarter: 2020Q4

REPORT INFORMATION
  Report Type: Spontaneous
  Country: RO (occurrence: RO)
  Receive Date: 20201104
  Receipt Date: 20201104
  Transmission Date: 20210114
  Serious: Yes (Other)
  Sender: FDA-Public Use
  Company Number: RO-ASTRAZENECA-2020SF42685

PATIENT
  Sex: Male

DRUGS (9)
  1. ATORIS [Concomitant]
     Active Substance: ATORVASTATIN CALCIUM
     Dosage: 10 MG 0-0-1
  2. MAGNESIUM [Concomitant]
     Active Substance: MAGNESIUM
     Dosage: 500 MG 1-0-0
  3. FUROSEMIDE. [Concomitant]
     Active Substance: FUROSEMIDE
     Dosage: 40 MG 1/2 0-0
  4. ELIQUIS [Concomitant]
     Active Substance: APIXABAN
     Dosage: 5 MG 1-0-1
  5. CARVEDIROL [Concomitant]
     Dosage: 12.5MG 1-0-1
  6. MILURIT [Concomitant]
     Active Substance: ALLOPURINOL
     Dosage: 300 MG 1-0-0
  7. DIUREX [Concomitant]
     Dosage: 50 / 20 MG 0-1-0
  8. FORXIGA [Suspect]
     Active Substance: DAPAGLIFLOZIN
     Indication: GLYCOSYLATED HAEMOGLOBIN
     Dosage: 10.0MG UNKNOWN
     Route: 048
     Dates: start: 20200918, end: 20201027
  9. ENTRESTO [Concomitant]
     Active Substance: SACUBITRIL\VALSARTAN
     Dosage: 24/26 MG 1-0-1

REACTIONS (2)
  - Ketonuria [Unknown]
  - Glycosylated haemoglobin increased [Unknown]
